FAERS Safety Report 15885358 (Version 2)
Quarter: 2019Q1

REPORT INFORMATION
  Report Type: Spontaneous
  Country: BE (occurrence: BE)
  Receive Date: 20190129
  Receipt Date: 20190129
  Transmission Date: 20190417
  Serious: Yes (Hospitalization, Other)
  Sender: FDA-Public Use
  Company Number: PHHY2019BE015915

PATIENT
  Age: 13 Year
  Sex: Male
  Weight: 61 kg

DRUGS (12)
  1. COTRIMOXAZOLE [Suspect]
     Active Substance: SULFAMETHOXAZOLE\TRIMETHOPRIM
     Indication: PRODUCT USED FOR UNKNOWN INDICATION
     Dosage: 400 MG, BID
     Route: 048
     Dates: start: 20080603
  2. CYTARABINE. [Suspect]
     Active Substance: CYTARABINE
     Indication: PRODUCT USED FOR UNKNOWN INDICATION
     Dosage: UNK
     Route: 037
     Dates: start: 20080716, end: 20080716
  3. METHYLPREDNISOLONE. [Suspect]
     Active Substance: METHYLPREDNISOLONE
     Indication: PRODUCT USED FOR UNKNOWN INDICATION
     Dosage: UNK
     Route: 037
     Dates: start: 20080716, end: 20080716
  4. SEDACID (OMEPRAZOLE) [Suspect]
     Active Substance: OMEPRAZOLE
     Indication: PRODUCT USED FOR UNKNOWN INDICATION
     Dosage: 20 MG, QD
     Route: 048
     Dates: start: 20080307, end: 20080727
  5. CYCLOPHOSPHAMIDE. [Suspect]
     Active Substance: CYCLOPHOSPHAMIDE
     Indication: PRODUCT USED FOR UNKNOWN INDICATION
     Dosage: 100 MG/M2, UNK
     Route: 042
     Dates: start: 20080714, end: 20080714
  6. THIOGUANINE [Concomitant]
     Active Substance: THIOGUANINE
     Indication: PRODUCT USED FOR UNKNOWN INDICATION
     Dosage: 60 MG/M2, QD
     Route: 048
     Dates: start: 20080714, end: 20080728
  7. ONDANSETRON HYDROCHLORIDE. [Suspect]
     Active Substance: ONDANSETRON HYDROCHLORIDE
     Indication: PRODUCT USED FOR UNKNOWN INDICATION
     Dosage: 5 MG/M2, QD
     Route: 065
     Dates: start: 20080714, end: 20080729
  8. CYTARABINE. [Suspect]
     Active Substance: CYTARABINE
     Dosage: 75 MG/M2, UNK
     Route: 042
     Dates: start: 20080716, end: 20080719
  9. MESNA. [Concomitant]
     Active Substance: MESNA
     Indication: PRODUCT USED FOR UNKNOWN INDICATION
     Dosage: 1000 MG/M
     Route: 065
     Dates: start: 20080714, end: 20080714
  10. METHOTREXATE. [Suspect]
     Active Substance: METHOTREXATE
     Indication: PRODUCT USED FOR UNKNOWN INDICATION
     Dosage: 12 MG, UNK
     Route: 037
     Dates: start: 20080716, end: 20080716
  11. CYTARABINE. [Suspect]
     Active Substance: CYTARABINE
     Dosage: 75 MG/M2, UNK
     Route: 042
     Dates: start: 20080723, end: 20080726
  12. MESNA. [Concomitant]
     Active Substance: MESNA
     Dosage: UNK
     Route: 042

REACTIONS (4)
  - Dysarthria [Recovered/Resolved]
  - Facial paralysis [Recovered/Resolved]
  - Stomatitis [Unknown]
  - Hemiparesis [Recovered/Resolved]

NARRATIVE: CASE EVENT DATE: 20080727
